FAERS Safety Report 25166833 (Version 1)
Quarter: 2025Q2

REPORT INFORMATION
  Report Type: Spontaneous
  Country: US (occurrence: None)
  Receive Date: 20250405
  Receipt Date: 20250405
  Transmission Date: 20250716
  Serious: Yes (Life-Threatening, Hospitalization, Disabling, Congenital Anomaly, Other)
  Sender: FDA-CTU
  Company Number: None

PATIENT
  Age: 35 Year
  Sex: Female

DRUGS (11)
  1. ADDERALL [Suspect]
     Active Substance: AMPHETAMINE ASPARTATE\AMPHETAMINE SULFATE\DEXTROAMPHETAMINE SACCHARATE\DEXTROAMPHETAMINE SULFATE
  2. TRAMADOL [Suspect]
     Active Substance: TRAMADOL
  3. OXYCODONE [Suspect]
     Active Substance: OXYCODONE
  4. CAPSAICIN [Suspect]
     Active Substance: CAPSAICIN
  5. LIDOCAINE [Suspect]
     Active Substance: LIDOCAINE
  6. DEXTROMETHORPHAN [Suspect]
     Active Substance: DEXTROMETHORPHAN
  7. AMITRIPTYLINE [Suspect]
     Active Substance: AMITRIPTYLINE
  8. PANTOPRAZOLE [Suspect]
     Active Substance: PANTOPRAZOLE
  9. VITAMINS [Concomitant]
     Active Substance: VITAMINS
  10. CYANOCOBALAMIN\DEXPANTHENOL\NIACINAMIDE\PYRIDOXINE HYDROCHLORIDE\RIBOF [Concomitant]
     Active Substance: CYANOCOBALAMIN\DEXPANTHENOL\NIACINAMIDE\PYRIDOXINE HYDROCHLORIDE\RIBOFLAVIN 5^-PHOSPHATE SODIUM\THIA
  11. Omega [Concomitant]

REACTIONS (8)
  - Therapy change [None]
  - Stress [None]
  - Psychological trauma [None]
  - Abnormal behaviour [None]
  - Delusional disorder, unspecified type [None]
  - Depression [None]
  - Insomnia [None]
  - Hypophagia [None]
